FAERS Safety Report 16498512 (Version 1)
Quarter: 2019Q2

REPORT INFORMATION
  Report Type: Spontaneous
  Country: CA (occurrence: CA)
  Receive Date: 20190629
  Receipt Date: 20190629
  Transmission Date: 20190711
  Serious: Yes (Other)
  Sender: FDA-Public Use
  Company Number: CA-TEVA-2019-CA-1069172

PATIENT
  Age: 79 Year
  Sex: Female

DRUGS (3)
  1. ENTERIC COATED ASA [Concomitant]
     Active Substance: ASPIRIN
  2. BISOPROLOL [Suspect]
     Active Substance: BISOPROLOL
     Route: 048
  3. PANTOPRAZOLE [Concomitant]
     Active Substance: PANTOPRAZOLE

REACTIONS (2)
  - Dizziness [Unknown]
  - Fall [Unknown]
